FAERS Safety Report 23956121 (Version 1)
Quarter: 2024Q2

REPORT INFORMATION
  Report Type: Spontaneous
  Country: US (occurrence: None)
  Receive Date: 20240607
  Receipt Date: 20240607
  Transmission Date: 20240715
  Serious: Yes (unspecified)
  Sender: FDA-Public Use
  Company Number: None

PATIENT
  Age: 53 Year
  Sex: Male

DRUGS (1)
  1. PIQRAY [Suspect]
     Active Substance: ALPELISIB
     Indication: Breast cancer male
     Dosage: FREQUENCY : DAILY;?
     Dates: end: 20240606

REACTIONS (6)
  - Skin exfoliation [None]
  - Blister [None]
  - Tremor [None]
  - Hyperglycaemia [None]
  - Pruritus [None]
  - Rash erythematous [None]
